FAERS Safety Report 12835607 (Version 1)
Quarter: 2016Q4

REPORT INFORMATION
  Report Type: Report from Study
  Country: US (occurrence: US)
  Receive Date: 20161011
  Receipt Date: 20161011
  Transmission Date: 20170207
  Serious: No
  Sender: FDA-Public Use
  Company Number: PHEH2016US025980

PATIENT
  Sex: Female

DRUGS (2)
  1. AFINITOR [Suspect]
     Active Substance: EVEROLIMUS
     Dosage: 2.5 MG,  ON DAY 14
     Route: 048
  2. AFINITOR [Suspect]
     Active Substance: EVEROLIMUS
     Indication: ASTROCYTOMA, LOW GRADE
     Dosage: 5 MG, 5 MG FOR 13 DAYS, 2.5 MG ON DAY 14 , REPEAT EVERY 14 DAYS
     Route: 048
     Dates: start: 20110108

REACTIONS (3)
  - Pyrexia [Recovered/Resolved]
  - Erythema [Unknown]
  - Peripheral swelling [Unknown]
